FAERS Safety Report 6984039-8 (Version None)
Quarter: 2010Q3

REPORT INFORMATION
  Report Type: 
  Country: None (occurrence: None)
  Receive Date: 20100915
  Receipt Date: 20090518
  Transmission Date: 20110219
  Serious: No
  Sender: FDA-Public Use
  Company Number: US-WYE-H09396209

PATIENT
  Sex: Male
  Weight: 88.53 kg

DRUGS (8)
  1. PRISTIQ [Suspect]
     Indication: ANXIETY
     Route: 048
     Dates: start: 20090511
  2. ALPRAZOLAM [Concomitant]
  3. SULAR [Concomitant]
  4. ACETYLSALICYLIC ACID [Concomitant]
  5. ZYLOPRIM [Concomitant]
  6. DOXYCYCLINE [Concomitant]
  7. POTASSIUM [Concomitant]
  8. LEXAPRO [Concomitant]

REACTIONS (3)
  - FEELING JITTERY [None]
  - NAUSEA [None]
  - PAIN [None]
